FAERS Safety Report 24871720 (Version 1)
Quarter: 2025Q1

REPORT INFORMATION
  Report Type: Spontaneous
  Country: US (occurrence: US)
  Receive Date: 20250122
  Receipt Date: 20250122
  Transmission Date: 20250409
  Serious: No
  Sender: BIONPHARMA INC.
  Company Number: US-Bion-014652

PATIENT
  Sex: Male

DRUGS (1)
  1. IBUPROFEN [Suspect]
     Active Substance: IBUPROFEN
     Indication: Ligament sprain
     Dates: start: 20240109

REACTIONS (1)
  - Drug ineffective [Not Recovered/Not Resolved]
